FAERS Safety Report 10214077 (Version 3)
Quarter: 2014Q3

REPORT INFORMATION
  Report Type: Report from Study
  Country: DE (occurrence: DE)
  Receive Date: 20140603
  Receipt Date: 20140707
  Transmission Date: 20150326
  Serious: Yes (Hospitalization)
  Sender: FDA-Public Use
  Company Number: DE-B.I. PHARMACEUTICALS,INC./RIDGEFIELD-2014-BI-16379BI

PATIENT
  Age: 84 Year
  Sex: Male
  Weight: 94 kg

DRUGS (1)
  1. DABIGATRAN [Suspect]
     Active Substance: DABIGATRAN
     Indication: ATRIAL FIBRILLATION
     Dosage: 300 MG
     Route: 048
     Dates: start: 20131218, end: 20140505

REACTIONS (3)
  - Colitis ischaemic [Recovered/Resolved]
  - Alopecia [Not Recovered/Not Resolved]
  - Lower gastrointestinal haemorrhage [Recovered/Resolved]

NARRATIVE: CASE EVENT DATE: 201312
